FAERS Safety Report 4268975-1 (Version None)
Quarter: 2004Q1

REPORT INFORMATION
  Report Type: 
  Country: None (occurrence: None)
  Receive Date: 20040108
  Receipt Date: 20031230
  Transmission Date: 20041129
  Serious: Yes (Hospitalization, Other)
  Sender: FDA-Public Use
  Company Number: USA-2002-0002831

PATIENT
  Age: 44 Year
  Sex: Male
  Weight: 63 kg

DRUGS (52)
  1. OXYCONTIN [Suspect]
     Indication: PAIN
     Dosage: SEE IMAGE
     Dates: start: 19961101, end: 19990301
  2. OXYCONTIN [Suspect]
     Indication: PAIN
     Dosage: SEE IMAGE
     Dates: start: 19990401, end: 20010901
  3. OXYCONTIN [Suspect]
     Indication: PAIN
     Dosage: SEE IMAGE
     Dates: start: 19961101
  4. DEMEROL [Suspect]
     Indication: PAIN
     Dosage: PRN, INTRAVENOUS
     Route: 042
  5. SOMA [Concomitant]
  6. TRAZODONE HCL [Concomitant]
  7. PHENOBARBITAL TAB [Concomitant]
  8. ALLOPURINOL [Concomitant]
  9. NITROGLYCERIN [Concomitant]
  10. CLARITIN [Concomitant]
  11. OXYPHENONIUM BROMIDE (OXYPHENONIUM BROMIDE) [Concomitant]
  12. LEVAQUIN [Concomitant]
  13. THERAGRAN-M (MINERALS NOS, VITAMINS NOS) [Concomitant]
  14. MYCELEX [Concomitant]
  15. SINGULAIR [Concomitant]
  16. ZANTAC [Concomitant]
  17. CIPROFLOXACIN [Concomitant]
  18. DELTASONE [Concomitant]
  19. DEMADEX [Concomitant]
  20. FOLIC ACID [Concomitant]
  21. MULTIVITAMIN [Concomitant]
  22. PROBENECID [Concomitant]
  23. COLCHICINE (COLCHICINE) [Concomitant]
  24. COMBIVENT (SALBUTAMOL SULFATE, IPRATROPIUM BROMIDE) [Concomitant]
  25. NORCO [Concomitant]
  26. ADALAT [Concomitant]
  27. LOTENSIN [Concomitant]
  28. PHENERGAN [Concomitant]
  29. ATROVENT [Concomitant]
  30. VALIUM [Concomitant]
  31. ALBUTEROL [Concomitant]
  32. DELTASONE [Concomitant]
  33. NORVASC [Concomitant]
  34. VIAGRA [Concomitant]
  35. ALPRAZOLAM [Concomitant]
  36. PLENDIL [Concomitant]
  37. HYDROCODONE W/ACETAMINOPHEN [Concomitant]
  38. FUROSEMIDE [Concomitant]
  39. CEFTIN [Concomitant]
  40. BIAXIN [Concomitant]
  41. FLOMAX [Concomitant]
  42. NITROSTAT [Concomitant]
  43. PREVACID [Concomitant]
  44. PATANOL [Concomitant]
  45. BUTALBITAL, ACETAMINOPHEN + CAFFEIENE (BUTALBITAL) [Concomitant]
  46. METHYLPREDNISOLONE [Concomitant]
  47. K-DUR 10 [Concomitant]
  48. PROTONIX [Concomitant]
  49. EDEX (ALPROSTADIL) [Concomitant]
  50. CLONIDINE HCL [Concomitant]
  51. CARDIZEM CD [Concomitant]
  52. ROXILOX [Concomitant]

REACTIONS (57)
  - ABDOMINAL PAIN [None]
  - ANXIETY [None]
  - ASTHENIA [None]
  - ASTHMA [None]
  - ATELECTASIS [None]
  - BLOOD POTASSIUM INCREASED [None]
  - BRONCHITIS [None]
  - BRONCHOSPASM [None]
  - CHEST PAIN [None]
  - CONFUSIONAL STATE [None]
  - CONSTIPATION [None]
  - CONVULSION [None]
  - DEHYDRATION [None]
  - DEPRESSION [None]
  - DIARRHOEA [None]
  - DIZZINESS [None]
  - DRUG ABUSER [None]
  - DRUG DEPENDENCE [None]
  - DRUG WITHDRAWAL SYNDROME [None]
  - DYSPNOEA [None]
  - DYSURIA [None]
  - ELECTROCARDIOGRAM ABNORMAL [None]
  - ERECTILE DYSFUNCTION [None]
  - EYE INFECTION [None]
  - FEELING COLD [None]
  - GASTRITIS [None]
  - HAEMATURIA [None]
  - HEADACHE [None]
  - HEPATITIS C [None]
  - HYPERALBUMINAEMIA [None]
  - HYPERTENSION [None]
  - LUNG INFILTRATION [None]
  - METABOLIC ACIDOSIS [None]
  - MUSCLE SPASMS [None]
  - NAUSEA [None]
  - NOCTURIA [None]
  - PAIN [None]
  - PANCREATITIS [None]
  - PNEUMONIA [None]
  - PRURITUS [None]
  - RENAL FAILURE [None]
  - RESPIRATORY DEPRESSION [None]
  - ROAD TRAFFIC ACCIDENT [None]
  - SEPSIS [None]
  - SERUM FERRITIN INCREASED [None]
  - SICKLE CELL ANAEMIA WITH CRISIS [None]
  - SINUS TACHYCARDIA [None]
  - SMALL INTESTINAL OBSTRUCTION [None]
  - STOMATITIS [None]
  - TESTICULAR PAIN [None]
  - THROMBOCYTOPENIA [None]
  - TREMOR [None]
  - UPPER RESPIRATORY TRACT INFECTION [None]
  - URINARY RETENTION [None]
  - URINARY TRACT INFECTION [None]
  - VOMITING [None]
  - WHEEZING [None]
